FAERS Safety Report 14400850 (Version 1)
Quarter: 2018Q1

REPORT INFORMATION
  Report Type: Other
  Country: NO (occurrence: NO)
  Receive Date: 20180117
  Receipt Date: 20180117
  Transmission Date: 20180509
  Serious: Yes (Other)
  Sender: FDA-Public Use
  Company Number: NO-STRIDES ARCOLAB LIMITED-2018SP000281

PATIENT

DRUGS (1)
  1. PRAMIPEXOLE DIHYDROCHLORIDE. [Suspect]
     Active Substance: PRAMIPEXOLE DIHYDROCHLORIDE
     Indication: PRODUCT USED FOR UNKNOWN INDICATION
     Dosage: UNK
     Route: 065

REACTIONS (2)
  - Product substitution issue [Recovered/Resolved]
  - Parkinson^s disease [Recovered/Resolved]
